FAERS Safety Report 14541813 (Version 2)
Quarter: 2018Q3

REPORT INFORMATION
  Report Type: Spontaneous
  Country: NL (occurrence: NL)
  Receive Date: 20180216
  Receipt Date: 20180723
  Transmission Date: 20181010
  Serious: Yes (Other)
  Sender: FDA-Public Use
  Company Number: NL-TEVA-2018-NL-858188

PATIENT
  Age: 8 Year
  Sex: Female
  Weight: 40 kg

DRUGS (3)
  1. LEVICETIRIZINE [Concomitant]
     Dosage: ONCE DAILY 1 ? 5MG
     Dates: start: 2014
  2. LAMOTRIGINE TABLET, 25 MG (MILLIGRAM) [Suspect]
     Active Substance: LAMOTRIGINE
     Indication: EPILEPSY
     Dosage: TWICE DAILY 1
     Dates: start: 201711
  3. FRISIUM 2XD1 [Concomitant]
     Dates: start: 201711

REACTIONS (1)
  - Toxic skin eruption [Recovering/Resolving]

NARRATIVE: CASE EVENT DATE: 20171202
